FAERS Safety Report 14898845 (Version 3)
Quarter: 2018Q4

REPORT INFORMATION
  Report Type: Spontaneous
  Country: None (occurrence: CO)
  Receive Date: 20180515
  Receipt Date: 20181022
  Transmission Date: 20190204
  Serious: Yes (Other)
  Sender: FDA-Public Use
  Company Number: CO-POPULATION COUNCIL, INC.-2047837

PATIENT
  Age: 23 Year
  Sex: Female
  Weight: 65 kg

DRUGS (1)
  1. JADELLE [Suspect]
     Active Substance: LEVONORGESTREL
     Indication: CONTRACEPTION
     Route: 059
     Dates: start: 20180119, end: 20180402

REACTIONS (7)
  - Acne [None]
  - Menstrual disorder [None]
  - Skin disorder [Recovered/Resolved]
  - Nausea [Recovered/Resolved]
  - Breast tenderness [None]
  - Genital haemorrhage [Recovered/Resolved]
  - Dizziness [Recovered/Resolved]
